FAERS Safety Report 9799520 (Version 1)
Quarter: 2014Q1

REPORT INFORMATION
  Report Type: Spontaneous
  Country: US (occurrence: US)
  Receive Date: 20140106
  Receipt Date: 20140106
  Transmission Date: 20141002
  Serious: No
  Sender: FDA-Public Use
  Company Number: US-009507513-1401USA001336

PATIENT
  Age: 27 Year
  Sex: Female

DRUGS (1)
  1. CLARITIN-D-24 [Suspect]
     Indication: SINUSITIS
     Dosage: UNK, UNKNOWN
     Route: 048

REACTIONS (3)
  - Unevaluable event [Unknown]
  - Therapeutic response unexpected [Unknown]
  - Off label use [Unknown]
